FAERS Safety Report 5319206-2 (Version None)
Quarter: 2007Q2

REPORT INFORMATION
  Report Type: 
  Country: None (occurrence: None)
  Receive Date: 20070508
  Receipt Date: 20070502
  Transmission Date: 20071010
  Serious: Yes (Other)
  Sender: FDA-Public Use
  Company Number: FR-JNJFOC-20070205286

PATIENT
  Sex: Female
  Weight: 43 kg

DRUGS (2)
  1. RISPERDAL [Suspect]
     Indication: ABNORMAL BEHAVIOUR
     Route: 048
  2. LEPTICUR [Concomitant]

REACTIONS (4)
  - DYSKINESIA [None]
  - DYSPHAGIA [None]
  - JOINT STIFFNESS [None]
  - URINARY INCONTINENCE [None]
